FAERS Safety Report 19432470 (Version 1)
Quarter: 2021Q2

REPORT INFORMATION
  Report Type: Spontaneous
  Country: DE (occurrence: DE)
  Receive Date: 20210617
  Receipt Date: 20210617
  Transmission Date: 20210717
  Serious: Yes (Hospitalization)
  Sender: FDA-Public Use
  Company Number: DE-PFIZER INC-2021645888

PATIENT
  Age: 73 Year
  Sex: Female

DRUGS (48)
  1. DURVALUMAB. [Suspect]
     Active Substance: DURVALUMAB
     Indication: OVARIAN CANCER METASTATIC
     Dosage: 1120 MG, SINGLE
     Route: 042
     Dates: start: 20201028, end: 20201028
  2. DURVALUMAB. [Suspect]
     Active Substance: DURVALUMAB
     Dosage: 1120 MG, SINGLE
     Route: 042
     Dates: start: 20201209, end: 20201209
  3. RANITIDINE. [Concomitant]
     Active Substance: RANITIDINE
     Indication: PREMEDICATION
     Route: 048
     Dates: start: 20201007
  4. BEVACIZUMAB. [Suspect]
     Active Substance: BEVACIZUMAB
     Indication: OVARIAN CANCER METASTATIC
     Dosage: UNK
     Dates: start: 20201028, end: 20201028
  5. BEVACIZUMAB. [Suspect]
     Active Substance: BEVACIZUMAB
     Dosage: UNK
     Dates: start: 20210120, end: 20210121
  6. BEVACIZUMAB. [Suspect]
     Active Substance: BEVACIZUMAB
     Dosage: UNK
     Dates: start: 20210310, end: 20210310
  7. BEVACIZUMAB. [Suspect]
     Active Substance: BEVACIZUMAB
     Dosage: UNK
     Dates: start: 20210510, end: 20210510
  8. DURVALUMAB. [Suspect]
     Active Substance: DURVALUMAB
     Dosage: 1120 MG, SINGLE
     Route: 042
     Dates: start: 20201230, end: 20201230
  9. DURVALUMAB. [Suspect]
     Active Substance: DURVALUMAB
     Dosage: 1120 MG, SINGLE
     Route: 042
     Dates: start: 20210510, end: 20210510
  10. FURADANTIN [Concomitant]
     Active Substance: NITROFURANTOIN
     Indication: URINARY TRACT INFECTION
     Route: 048
     Dates: start: 20210201, end: 20210208
  11. REPROTEROL HYDROCHLORIDE [Concomitant]
     Active Substance: REPROTEROL HYDROCHLORIDE
     Indication: ASTHMA
     Route: 055
  12. NEUROBION [CYANOCOBALAMIN;PYRIDOXINE;THIAMINE] [Concomitant]
     Indication: CHEMOTHERAPY
     Route: 048
     Dates: start: 20201007
  13. AMOXI  CLAVULIN [Concomitant]
     Indication: URINARY TRACT INFECTION
     Route: 048
     Dates: start: 20201221
  14. CHLORHEXAMED [Concomitant]
     Indication: GINGIVITIS
     Dosage: UNK
     Route: 048
     Dates: start: 20201203
  15. PACLITAXEL. [Concomitant]
     Active Substance: PACLITAXEL
     Indication: OVARIAN CANCER
     Dates: start: 20201007, end: 20210120
  16. DURVALUMAB. [Suspect]
     Active Substance: DURVALUMAB
     Dosage: 1120 MG, SINGLE
     Route: 042
     Dates: start: 20210421, end: 20210421
  17. CARBOPLATIN. [Concomitant]
     Active Substance: CARBOPLATIN
     Indication: OVARIAN CANCER
     Dosage: UNK
     Dates: start: 20201007, end: 20210120
  18. BEVACIZUMAB. [Suspect]
     Active Substance: BEVACIZUMAB
     Dosage: UNK
     Dates: start: 20201209, end: 20201209
  19. BEVACIZUMAB. [Suspect]
     Active Substance: BEVACIZUMAB
     Dosage: UNK
     Dates: start: 20210421, end: 20210421
  20. GLANDOMED [Concomitant]
     Indication: ORAL CANDIDIASIS
  21. SODIUM CROMOGLYCATE [Concomitant]
     Active Substance: CROMOLYN SODIUM
     Indication: ASTHMA
     Route: 055
  22. BEVACIZUMAB. [Suspect]
     Active Substance: BEVACIZUMAB
     Dosage: UNK
     Dates: start: 20201230, end: 20201230
  23. DURVALUMAB. [Suspect]
     Active Substance: DURVALUMAB
     Dosage: 1120 MG, SINGLE
     Route: 042
     Dates: start: 20201118, end: 20201118
  24. DURVALUMAB. [Suspect]
     Active Substance: DURVALUMAB
     Dosage: 1120 MG, SINGLE
     Route: 042
     Dates: start: 20210120, end: 20210120
  25. DURVALUMAB. [Suspect]
     Active Substance: DURVALUMAB
     Dosage: 1120 MG, SINGLE
     Route: 042
     Dates: start: 20210310, end: 20210310
  26. GLANDOMED [Concomitant]
     Indication: GINGIVITIS
     Route: 048
     Dates: start: 20201230, end: 20210218
  27. DEXAMETHASONE. [Concomitant]
     Active Substance: DEXAMETHASONE
     Dosage: 8 MG, 1X/DAY
     Route: 048
     Dates: start: 20201008
  28. BEPANTHEN [DEXPANTHENOL] [Concomitant]
     Active Substance: DEXPANTHENOL
     Indication: EPISTAXIS
     Dosage: UNK
     Route: 003
     Dates: start: 20210101
  29. L?THYROXINE [LEVOTHYROXINE SODIUM] [Concomitant]
     Active Substance: LEVOTHYROXINE SODIUM
     Indication: HYPOTHYROIDISM
     Route: 048
  30. OMEPRAZOL [Concomitant]
     Active Substance: OMEPRAZOLE
     Indication: DYSPEPSIA
     Route: 048
  31. IBUPROFEN. [Concomitant]
     Active Substance: IBUPROFEN
     Indication: BACK PAIN
     Route: 048
  32. FLUTICASONE. [Concomitant]
     Active Substance: FLUTICASONE
     Indication: ASTHMA
     Route: 055
  33. DURVALUMAB. [Suspect]
     Active Substance: DURVALUMAB
     Dosage: 1120 MG, SINGLE
     Route: 042
     Dates: start: 20210217, end: 20210217
  34. CEFPODOXIME [Concomitant]
     Active Substance: CEFPODOXIME
     Indication: URINARY TRACT INFECTION
     Route: 048
     Dates: start: 20201204
  35. BEVACIZUMAB. [Suspect]
     Active Substance: BEVACIZUMAB
     Dosage: UNK
     Dates: start: 20210217, end: 20210217
  36. BEVACIZUMAB. [Suspect]
     Active Substance: BEVACIZUMAB
     Dosage: UNK
     Dates: start: 20210331, end: 20210331
  37. DURVALUMAB. [Suspect]
     Active Substance: DURVALUMAB
     Dosage: 1120 MG, SINGLE
     Route: 042
     Dates: start: 20210331, end: 20210331
  38. METOCLOPRAMIDE. [Concomitant]
     Active Substance: METOCLOPRAMIDE
     Indication: CHEMOTHERAPY
     Route: 048
     Dates: start: 20201008
  39. GRANISETRON [Concomitant]
     Active Substance: GRANISETRON
     Indication: PREMEDICATION
     Route: 048
     Dates: start: 20201007
  40. SPASMOLIT [Concomitant]
     Indication: BLADDER SPASM
     Route: 048
     Dates: start: 20201221
  41. BEVACIZUMAB. [Suspect]
     Active Substance: BEVACIZUMAB
     Dosage: UNK
     Dates: start: 20201118, end: 20201118
  42. PLACEBO [Suspect]
     Active Substance: UNSPECIFIED INGREDIENT
     Indication: OVARIAN CANCER METASTATIC
     Dosage: TWICE A DAY
     Route: 048
     Dates: start: 20210218
  43. DEXAMETHASONE. [Concomitant]
     Active Substance: DEXAMETHASONE
     Indication: PREMEDICATION
     Dosage: 20 MG, 1X/DAY
     Route: 042
     Dates: start: 20201007
  44. MICROLAX [SODIUM CITRATE;SODIUM LAURYL SULFOACETATE;SORBITOL] [Concomitant]
     Active Substance: SODIUM CITRATE\SODIUM LAURYL SULFOACETATE\SORBITOL
     Indication: CONSTIPATION
     Route: 054
     Dates: start: 20201120
  45. AMOXI  CLAVULIN [Concomitant]
     Indication: URINARY INCONTINENCE
  46. FENISTIL [Concomitant]
     Active Substance: DIMETHINDENE
     Indication: PREMEDICATION
     Route: 048
     Dates: start: 20201007
  47. SALMETEROL [Concomitant]
     Active Substance: SALMETEROL
     Indication: ASTHMA
     Route: 055
  48. PANTOZOL [Concomitant]
     Active Substance: PANTOPRAZOLE SODIUM
     Indication: CHEMOTHERAPY
     Route: 048
     Dates: start: 20201008

REACTIONS (1)
  - Psoas abscess [Recovered/Resolved]

NARRATIVE: CASE EVENT DATE: 20210208
